FAERS Safety Report 10095381 (Version 1)
Quarter: 2014Q2

REPORT INFORMATION
  Report Type: Spontaneous
  Country: US (occurrence: None)
  Receive Date: 20140418
  Receipt Date: 20140418
  Transmission Date: 20141212
  Serious: Yes (Other)
  Sender: FDA-Public Use
  Company Number: ADR-2014-00623

PATIENT
  Age: 54 Year
  Sex: Male

DRUGS (2)
  1. COMPOUNDED BACLOFEN INTRATHECAL - 2,000MCG/ML [Suspect]
     Indication: SPINAL PAIN
  2. DILAUDID INTRATHECAL [Suspect]

REACTIONS (4)
  - Back pain [None]
  - Arachnoiditis [None]
  - Back pain [None]
  - Hemiparesis [None]
